FAERS Safety Report 7347494-X (Version None)
Quarter: 2011Q1

REPORT INFORMATION
  Report Type: 
  Country: None (occurrence: None)
  Receive Date: 20110311
  Receipt Date: 20100128
  Transmission Date: 20110831
  Serious: No
  Sender: FDA-Public Use
  Company Number: US-BAYER-201012977NA

PATIENT
  Sex: Female
  Weight: 112.73 kg

DRUGS (3)
  1. XANAX [Concomitant]
  2. ZOLOFT [Concomitant]
  3. MIRENA [Suspect]
     Indication: CONTRACEPTION
     Dosage: 20 ?G/D, CONT
     Route: 015
     Dates: start: 20091230, end: 20100127

REACTIONS (1)
  - DEVICE EXPULSION [None]
